FAERS Safety Report 8581884-2 (Version None)
Quarter: 2012Q3

REPORT INFORMATION
  Report Type: 
  Country: None (occurrence: None)
  Receive Date: 20120809
  Receipt Date: 20120803
  Transmission Date: 20120928
  Serious: Yes (Other)
  Sender: FDA-Public Use
  Company Number: US-JNJFOC-20120802515

PATIENT
  Age: 75 Year
  Sex: Female
  Weight: 72.58 kg

DRUGS (6)
  1. CYMBALTA [Concomitant]
  2. DICLOFENAC [Concomitant]
  3. XARELTO [Suspect]
     Indication: THROMBOSIS PROPHYLAXIS
     Route: 048
  4. XARELTO [Suspect]
     Indication: KNEE OPERATION
     Route: 048
  5. PREDNISONE TAB [Concomitant]
  6. VICODIN [Concomitant]

REACTIONS (1)
  - PULMONARY EMBOLISM [None]
